FAERS Safety Report 9012225 (Version 1)
Quarter: 2013Q1

REPORT INFORMATION
  Report Type: Spontaneous
  Country: PL (occurrence: PL)
  Receive Date: 20130114
  Receipt Date: 20130114
  Transmission Date: 20140127
  Serious: Yes (Hospitalization, Other)
  Sender: FDA-Public Use
  Company Number: PL-BAYER-2013-002674

PATIENT
  Age: 53 Year
  Sex: Male

DRUGS (2)
  1. CIPROFLOXACIN [Suspect]
     Dosage: 250 MG, BID
  2. METHYLPREDNISOLONE [Concomitant]
     Dosage: 24 MG, DAILY

REACTIONS (3)
  - Arrhythmia [None]
  - Atrial fibrillation [None]
  - Asthenia [None]
